FAERS Safety Report 11130913 (Version 1)
Quarter: 2015Q2

REPORT INFORMATION
  Report Type: Spontaneous
  Country: US (occurrence: None)
  Receive Date: 20150520
  Receipt Date: 20150520
  Transmission Date: 20150821
  Serious: Yes (Hospitalization, Other)
  Sender: FDA-Public Use
  Company Number: DEP_02778_2015

PATIENT
  Age: 36 Year
  Sex: Female

DRUGS (3)
  1. NUCYNTA [Suspect]
     Active Substance: TAPENTADOL HYDROCHLORIDE
     Indication: SUICIDE ATTEMPT
     Dosage: DF ORAL
     Route: 048
     Dates: start: 20141018
  2. PHENTERMINE [Concomitant]
     Active Substance: PHENTERMINE
  3. BENZODIAZEPINE RELATED DRUGS [Suspect]
     Active Substance: BENZODIAZEPINE
     Indication: SUICIDE ATTEMPT
     Dosage: DF ORAL
     Route: 048
     Dates: start: 20141008

REACTIONS (3)
  - Intentional overdose [None]
  - Unresponsive to stimuli [None]
  - Suicide attempt [None]

NARRATIVE: CASE EVENT DATE: 20141008
